FAERS Safety Report 18652448 (Version 1)
Quarter: 2020Q4

REPORT INFORMATION
  Report Type: Report from Study
  Country: FR (occurrence: FR)
  Receive Date: 20201223
  Receipt Date: 20201223
  Transmission Date: 20210114
  Serious: Yes (Hospitalization, Other)
  Sender: FDA-Public Use
  Company Number: FR-TAKEDA-FR201916114

PATIENT
  Age: 71 Year
  Sex: Female
  Weight: 77 kg

DRUGS (17)
  1. TEDUGLUTIDE [Suspect]
     Active Substance: TEDUGLUTIDE
     Dosage: 3.6 MG (0.05MG/KG), TED DAILY DOSE MG 3.6, TED DAILY DOSES PER WEEK 7
     Route: 065
     Dates: start: 20170614, end: 201803
  2. TEDUGLUTIDE [Suspect]
     Active Substance: TEDUGLUTIDE
     Dosage: 3.4 MG (0.05 MG/KG), TED DAILY DOSE MG 3.4, TED DAILY DOSES PER WEEK 7
     Route: 065
     Dates: start: 201803
  3. TEDUGLUTIDE [Suspect]
     Active Substance: TEDUGLUTIDE
     Indication: SHORT-BOWEL SYNDROME
     Dosage: 3.8 MILLIGRAM (0.05 MG/KG),TED DAILY DOSE MG KG 0.05,TED DAILY DOSES PER WEEK 7
     Route: 065
     Dates: start: 20170325, end: 20170613
  4. TEDUGLUTIDE [Suspect]
     Active Substance: TEDUGLUTIDE
     Indication: SHORT-BOWEL SYNDROME
     Dosage: 3.8 MILLIGRAM (0.05 MG/KG),TED DAILY DOSE MG KG 0.05,TED DAILY DOSES PER WEEK 7
     Route: 065
     Dates: start: 20170325, end: 20170613
  5. TEDUGLUTIDE [Suspect]
     Active Substance: TEDUGLUTIDE
     Dosage: 3.4 MG (0.05 MG/KG), TED DAILY DOSE MG 3.4, TED DAILY DOSES PER WEEK 7
     Route: 065
     Dates: start: 201803
  6. TEDUGLUTIDE [Suspect]
     Active Substance: TEDUGLUTIDE
     Indication: SHORT-BOWEL SYNDROME
     Dosage: 3.8 MILLIGRAM (0.05 MG/KG),TED DAILY DOSE MG KG 0.05,TED DAILY DOSES PER WEEK 7
     Route: 065
     Dates: start: 20170325, end: 20170613
  7. CEFTRIAXONE. [Concomitant]
     Active Substance: CEFTRIAXONE
     Dosage: 1 GRAM, QD
     Route: 042
     Dates: start: 20170813, end: 20170819
  8. STELARA [Concomitant]
     Active Substance: USTEKINUMAB
     Indication: CROHN^S DISEASE
     Dosage: 90 MILLIGRAM, Q3MONTHS
     Route: 058
  9. TEDUGLUTIDE [Suspect]
     Active Substance: TEDUGLUTIDE
     Dosage: 3.6 MG (0.05MG/KG), TED DAILY DOSE MG 3.6, TED DAILY DOSES PER WEEK 7
     Route: 065
     Dates: start: 20170614, end: 201803
  10. TEDUGLUTIDE [Suspect]
     Active Substance: TEDUGLUTIDE
     Dosage: 3.6 MG (0.05MG/KG), TED DAILY DOSE MG 3.6, TED DAILY DOSES PER WEEK 7
     Route: 065
     Dates: start: 20170614, end: 201803
  11. UVEDOSE [Concomitant]
     Active Substance: CHOLECALCIFEROL
     Indication: OSTEOPENIA
     Route: 065
  12. OFLOCET [OFLOXACIN] [Concomitant]
     Active Substance: OFLOXACIN
     Indication: PYELONEPHRITIS
     Dosage: 1 DOSAGE FORM, QD
     Route: 048
     Dates: start: 20171205, end: 20171218
  13. TEDUGLUTIDE [Suspect]
     Active Substance: TEDUGLUTIDE
     Indication: SHORT-BOWEL SYNDROME
     Dosage: 3.8 MILLIGRAM (0.05 MG/KG),TED DAILY DOSE MG KG 0.05,TED DAILY DOSES PER WEEK 7
     Route: 065
     Dates: start: 20170325, end: 20170613
  14. TEDUGLUTIDE [Suspect]
     Active Substance: TEDUGLUTIDE
     Dosage: 3.6 MG (0.05MG/KG), TED DAILY DOSE MG 3.6, TED DAILY DOSES PER WEEK 7
     Route: 065
     Dates: start: 20170614, end: 201803
  15. TEDUGLUTIDE [Suspect]
     Active Substance: TEDUGLUTIDE
     Dosage: 3.4 MG (0.05 MG/KG), TED DAILY DOSE MG 3.4, TED DAILY DOSES PER WEEK 7
     Route: 065
     Dates: start: 201803
  16. TEDUGLUTIDE [Suspect]
     Active Substance: TEDUGLUTIDE
     Dosage: 3.4 MG (0.05 MG/KG), TED DAILY DOSE MG 3.4, TED DAILY DOSES PER WEEK 7
     Route: 065
     Dates: start: 201803
  17. CEFTRIAXONE. [Concomitant]
     Active Substance: CEFTRIAXONE
     Indication: PYELONEPHRITIS
     Dosage: 1 GRAM, QD
     Route: 042
     Dates: start: 20171204, end: 20171204

REACTIONS (3)
  - Hepatomegaly [Unknown]
  - Gastrointestinal haemorrhage [Recovered/Resolved]
  - Hepatosplenomegaly [Recovered/Resolved]

NARRATIVE: CASE EVENT DATE: 20190207
